FAERS Safety Report 10047652 (Version 5)
Quarter: 2015Q1

REPORT INFORMATION
  Report Type: Spontaneous
  Country: US (occurrence: US)
  Receive Date: 20140331
  Receipt Date: 20150116
  Transmission Date: 20150720
  Serious: Yes (Other)
  Sender: FDA-Public Use
  Company Number: US-PFIZER INC-2014089918

PATIENT
  Age: 61 Year
  Sex: Female

DRUGS (9)
  1. LIPITOR [Suspect]
     Active Substance: ATORVASTATIN CALCIUM
     Indication: BLOOD TRIGLYCERIDES INCREASED
  2. LIPITOR [Suspect]
     Active Substance: ATORVASTATIN CALCIUM
     Indication: LOW DENSITY LIPOPROTEIN INCREASED
     Dosage: 20 MG, 1X/DAY
     Route: 048
     Dates: start: 2003, end: 2008
  3. LIPITOR [Suspect]
     Active Substance: ATORVASTATIN CALCIUM
     Indication: CARDIOVASCULAR EVENT PROPHYLAXIS
  4. VISION FORMULA [Concomitant]
     Indication: EYE DISORDER
     Dosage: UNK, 1X/DAY (ONE DAILY)
     Dates: start: 2005
  5. MAGNESIUM [Concomitant]
     Active Substance: MAGNESIUM
     Indication: BLOOD PRESSURE
     Dosage: UNK, THREE DAILY
     Dates: start: 2005
  6. LIPITOR [Suspect]
     Active Substance: ATORVASTATIN CALCIUM
     Indication: BLOOD CHOLESTEROL INCREASED
  7. MULTIVITAMIN [Concomitant]
     Active Substance: VITAMINS
     Indication: PROPHYLAXIS
     Dosage: UNK, ONCE DAILY
     Dates: start: 2000
  8. ASPIRIN. [Concomitant]
     Active Substance: ASPIRIN
     Indication: HEADACHE
     Dosage: 81 MG, 3X/DAY
     Dates: start: 2005
  9. DIMETHYL SULFONE\GLUCOSAMINE SULFATE [Concomitant]
     Active Substance: DIMETHYL SULFONE\GLUCOSAMINE SULFATE
     Indication: ARTHRALGIA
     Dosage: 1500 MG, DAILY
     Dates: start: 2000

REACTIONS (1)
  - Type 2 diabetes mellitus [Not Recovered/Not Resolved]

NARRATIVE: CASE EVENT DATE: 200810
